FAERS Safety Report 14749078 (Version 1)
Quarter: 2018Q2

REPORT INFORMATION
  Report Type: Spontaneous
  Country: US (occurrence: US)
  Receive Date: 20180411
  Receipt Date: 20180411
  Transmission Date: 20180711
  Serious: No
  Sender: FDA-Public Use
  Company Number: US-AMGEN-USASP2018012400

PATIENT
  Age: 85 Year
  Sex: Female

DRUGS (3)
  1. LISINOPRIL. [Concomitant]
     Active Substance: LISINOPRIL
     Indication: BLOOD PRESSURE MEASUREMENT
  2. CARAFATE [Concomitant]
     Active Substance: SUCRALFATE
     Indication: GASTROINTESTINAL DISORDER
  3. PROLIA [Suspect]
     Active Substance: DENOSUMAB
     Indication: OSTEOPOROSIS POSTMENOPAUSAL
     Dosage: UNK
     Route: 065
     Dates: start: 20180122

REACTIONS (2)
  - Pain in jaw [Recovering/Resolving]
  - Ear pain [Unknown]

NARRATIVE: CASE EVENT DATE: 201801
